FAERS Safety Report 20991175 (Version 1)
Quarter: 2022Q2

REPORT INFORMATION
  Report Type: Spontaneous
  Country: IN (occurrence: IN)
  Receive Date: 20220622
  Receipt Date: 20220622
  Transmission Date: 20220720
  Serious: Yes (Other)
  Sender: FDA-Public Use
  Company Number: IN-RECORDATI-2022001798

PATIENT

DRUGS (3)
  1. OSILODROSTAT [Suspect]
     Active Substance: OSILODROSTAT
     Indication: Product used for unknown indication
     Dosage: 1 MILLIGRAM, BID
     Dates: start: 20210122
  2. OSILODROSTAT [Suspect]
     Active Substance: OSILODROSTAT
     Dosage: 2 MILLIGRAM, BID
     Dates: start: 20220108
  3. OSILODROSTAT [Suspect]
     Active Substance: OSILODROSTAT
     Dosage: UNK
     Dates: start: 20220509

REACTIONS (2)
  - Hypothyroidism [Not Recovered/Not Resolved]
  - Off label use [Recovered/Resolved]

NARRATIVE: CASE EVENT DATE: 20210122
